FAERS Safety Report 5209388-5 (Version None)
Quarter: 2006Q4

REPORT INFORMATION
  Report Type: 
  Country: None (occurrence: None)
  Receive Date: 20061101
  Receipt Date: 20060811
  Transmission Date: 20070319
  Serious: No
  Sender: FDA-Public Use
  Company Number: 2006PV019262

PATIENT
  Age: 56 Year
  Sex: Female
  Weight: 90.2658 kg

DRUGS (4)
  1. SYMLIN [Suspect]
     Indication: DIABETES MELLITUS INSULIN-DEPENDENT
     Dosage: 60 MCG; TID; SC
     Route: 058
     Dates: start: 20051201
  2. HUMALOG [Concomitant]
  3. LANTUS [Concomitant]
  4. LEVEMIR [Concomitant]

REACTIONS (5)
  - ALOPECIA [None]
  - ANAEMIA [None]
  - FATIGUE [None]
  - NAUSEA [None]
  - WEIGHT DECREASED [None]
